FAERS Safety Report 4586979-6 (Version None)
Quarter: 2005Q1

REPORT INFORMATION
  Report Type: 
  Country: None (occurrence: None)
  Receive Date: 20050218
  Receipt Date: 20050210
  Transmission Date: 20050727
  Serious: Yes (Hospitalization)
  Sender: FDA-Public Use
  Company Number: US-MERCK-0502USA01728

PATIENT
  Age: 45 Year
  Sex: Male

DRUGS (11)
  1. ELSPAR [Suspect]
     Indication: ACUTE LYMPHOCYTIC LEUKAEMIA
     Route: 042
  2. ELSPAR [Suspect]
     Route: 065
  3. DAUNORUBICIN [Concomitant]
     Indication: ACUTE LYMPHOCYTIC LEUKAEMIA
     Route: 065
  4. VINCRISTINE SULFATE [Concomitant]
     Indication: ACUTE LYMPHOCYTIC LEUKAEMIA
     Route: 065
  5. PREDNISONE [Concomitant]
     Indication: ACUTE LYMPHOCYTIC LEUKAEMIA
     Route: 065
  6. METHOTREXATE [Concomitant]
     Indication: ACUTE LYMPHOCYTIC LEUKAEMIA
     Route: 065
  7. METHOTREXATE [Concomitant]
     Route: 065
  8. METHOTREXATE [Concomitant]
     Route: 065
  9. CYCLOPHOSPHAMIDE [Concomitant]
     Indication: ACUTE LYMPHOCYTIC LEUKAEMIA
     Route: 065
  10. CYTARABINE [Concomitant]
     Indication: ACUTE LYMPHOCYTIC LEUKAEMIA
     Route: 065
  11. MERCAPTOPURINE [Concomitant]
     Indication: ACUTE LYMPHOCYTIC LEUKAEMIA
     Route: 065

REACTIONS (9)
  - ACTIVATED PARTIAL THROMBOPLASTIN TIME ABNORMAL [None]
  - ANTITHROMBIN III DECREASED [None]
  - BLOOD FIBRINOGEN DECREASED [None]
  - BRAIN OEDEMA [None]
  - HAEMORRHAGE INTRACRANIAL [None]
  - PROTEIN C DECREASED [None]
  - PROTEIN S DECREASED [None]
  - PROTHROMBIN LEVEL INCREASED [None]
  - SUPERIOR SAGITTAL SINUS THROMBOSIS [None]
